FAERS Safety Report 19314023 (Version 1)
Quarter: 2021Q2

REPORT INFORMATION
  Report Type: Spontaneous
  Country: PT (occurrence: PT)
  Receive Date: 20210527
  Receipt Date: 20210527
  Transmission Date: 20210717
  Serious: Yes (Other)
  Sender: FDA-Public Use
  Company Number: PT-MYLANLABS-2021M1030798

PATIENT
  Age: 25 Year
  Sex: Female

DRUGS (5)
  1. BETAHISTINE [Suspect]
     Active Substance: BETAHISTINE
     Indication: PRODUCT USED FOR UNKNOWN INDICATION
     Dosage: UNK, UNK, BID
     Route: 065
     Dates: start: 202009
  2. LEXOTAN [Suspect]
     Active Substance: BROMAZEPAM
     Indication: PRODUCT USED FOR UNKNOWN INDICATION
     Dosage: 1.5 MILLIGRAM, QD (1.5 MG, AT NIGHT AT BEDTIME)
     Route: 065
  3. PLEGRIDY [Suspect]
     Active Substance: PEGINTERFERON BETA-1A
     Indication: PRODUCT USED FOR UNKNOWN INDICATION
     Dosage: UNK, BIMONTHLY
     Route: 065
     Dates: start: 202010
  4. BETAHISTINE [Suspect]
     Active Substance: BETAHISTINE
     Dosage: UNK, QD (EVERY DAY)
     Route: 065
     Dates: start: 2020
  5. MIRTAZAPINE. [Suspect]
     Active Substance: MIRTAZAPINE
     Indication: PRODUCT USED FOR UNKNOWN INDICATION
     Dosage: 15 MILLIGRAM

REACTIONS (4)
  - Balance disorder [Unknown]
  - Ill-defined disorder [Unknown]
  - Fall [Unknown]
  - Emotional distress [Not Recovered/Not Resolved]

NARRATIVE: CASE EVENT DATE: 20200911
